FAERS Safety Report 25968128 (Version 1)
Quarter: 2025Q4

REPORT INFORMATION
  Report Type: Spontaneous
  Country: IN (occurrence: IN)
  Receive Date: 20251028
  Receipt Date: 20251028
  Transmission Date: 20260118
  Serious: Yes (Other)
  Sender: ELI LILLY AND COMPANY
  Company Number: IN-ELI_LILLY_AND_COMPANY-IN202510029231

PATIENT
  Sex: Female

DRUGS (1)
  1. ABEMACICLIB [Suspect]
     Active Substance: ABEMACICLIB
     Indication: Product used for unknown indication
     Dosage: UNK UNK, UNKNOWN
     Route: 048

REACTIONS (3)
  - Seizure [Unknown]
  - Syncope [Unknown]
  - Dehydration [Unknown]
